FAERS Safety Report 7586307-8 (Version None)
Quarter: 2011Q2

REPORT INFORMATION
  Report Type: 
  Country: None (occurrence: None)
  Receive Date: 20110630
  Receipt Date: 20110630
  Transmission Date: 20111010
  Serious: No
  Sender: FDA-Public Use
  Company Number: None

PATIENT
  Sex: Female
  Weight: 62.73 kg

DRUGS (6)
  1. ASPIRIN [Concomitant]
  2. TAXOL [Suspect]
     Dosage: 285 MG
  3. LISINOPRIL [Concomitant]
  4. BUMEX [Concomitant]
  5. CARBOPLATIN [Suspect]
     Dosage: 630 MG
  6. COREG [Concomitant]

REACTIONS (2)
  - NEUTROPHIL COUNT DECREASED [None]
  - WHITE BLOOD CELL COUNT DECREASED [None]
